FAERS Safety Report 9113546 (Version 1)
Quarter: 2013Q1

REPORT INFORMATION
  Report Type: Spontaneous
  Country: US (occurrence: US)
  Receive Date: 20130131
  Receipt Date: 20130131
  Transmission Date: 20140127
  Serious: No
  Sender: FDA-Public Use
  Company Number: US-PFIZER INC-2013034097

PATIENT
  Age: 58 Year
  Sex: Female
  Weight: 53.52 kg

DRUGS (4)
  1. CELEBREX [Suspect]
     Indication: OSTEOARTHRITIS
     Dosage: 200 MG, 2X/DAY
     Route: 048
     Dates: start: 201212
  2. CELEBREX [Suspect]
     Indication: POLYARTHRITIS
     Dosage: 200 MG, DAILY
     Route: 048
     Dates: end: 201301
  3. CELEBREX [Suspect]
     Indication: SPONDYLITIS
  4. ASPIRIN [Concomitant]
     Indication: ANTIPHOSPHOLIPID SYNDROME
     Dosage: 81 MG, DAILY

REACTIONS (3)
  - Intentional drug misuse [Unknown]
  - Somnolence [Unknown]
  - Drug ineffective [Unknown]
